FAERS Safety Report 15243394 (Version 1)
Quarter: 2018Q3

REPORT INFORMATION
  Report Type: Report from Study
  Country: US (occurrence: US)
  Receive Date: 20180806
  Receipt Date: 20180806
  Transmission Date: 20181010
  Serious: Yes (Other)
  Sender: FDA-Public Use
  Company Number: US-ADIENNEP-2018AD000428

PATIENT
  Age: 6 Month
  Sex: Female

DRUGS (7)
  1. METHOTREXATE. [Suspect]
     Active Substance: METHOTREXATE
  2. VINCRISTINE [Suspect]
     Active Substance: VINCRISTINE
  3. CYCLOPHOSPHAMIDE. [Suspect]
     Active Substance: CYCLOPHOSPHAMIDE
  4. CARBOPLATIN. [Suspect]
     Active Substance: CARBOPLATIN
     Indication: STEM CELL TRANSPLANT
  5. ETOPOSIDE. [Suspect]
     Active Substance: ETOPOSIDE
  6. THIOTEPA. [Suspect]
     Active Substance: THIOTEPA
     Indication: STEM CELL TRANSPLANT
  7. CISPLATIN. [Suspect]
     Active Substance: CISPLATIN

REACTIONS (3)
  - Bacterial sepsis [Unknown]
  - Ototoxicity [Unknown]
  - Malnutrition [Unknown]
